FAERS Safety Report 6027336-5 (Version None)
Quarter: 2009Q1

REPORT INFORMATION
  Report Type: 
  Country: None (occurrence: None)
  Receive Date: 20090105
  Receipt Date: 20081229
  Transmission Date: 20090719
  Serious: Yes (Hospitalization)
  Sender: FDA-Public Use
  Company Number: B0549191A

PATIENT
  Age: 78 Year
  Sex: Female

DRUGS (5)
  1. ARIXTRA [Suspect]
     Indication: THROMBOSIS PROPHYLAXIS
     Route: 058
     Dates: start: 20081107, end: 20081117
  2. AMLODIN [Concomitant]
     Dosage: 5MG PER DAY
     Route: 048
     Dates: end: 20081105
  3. RENIVACE [Concomitant]
     Dosage: 2.5MG PER DAY
     Route: 048
     Dates: end: 20081105
  4. FUROSEMIDE [Concomitant]
     Dosage: 10MG PER DAY
     Route: 048
     Dates: end: 20081105
  5. UNKNOWN DRUG [Concomitant]
     Dosage: 25MG PER DAY
     Route: 048
     Dates: end: 20081105

REACTIONS (4)
  - HAEMATOMA [None]
  - HYPOAESTHESIA [None]
  - OEDEMA PERIPHERAL [None]
  - POST PROCEDURAL HAEMORRHAGE [None]
